FAERS Safety Report 14423908 (Version 4)
Quarter: 2020Q2

REPORT INFORMATION
  Report Type: Spontaneous
  Country: US (occurrence: US)
  Receive Date: 20180123
  Receipt Date: 20200601
  Transmission Date: 20200713
  Serious: Yes (Other)
  Sender: FDA-Public Use
  Company Number: US-UCBSA-2017023593

PATIENT
  Age: 32 Year
  Sex: Female

DRUGS (1)
  1. CIMZIA [Suspect]
     Active Substance: CERTOLIZUMAB PEGOL
     Indication: PRODUCT USED FOR UNKNOWN INDICATION
     Dosage: STARTER DOSE (STRENGTH: 200 MG/ML); NDC NO: 50474071081,50474071079)

REACTIONS (4)
  - Rash [Unknown]
  - Influenza [Unknown]
  - Abscess [Unknown]
  - Pruritus [Unknown]

NARRATIVE: CASE EVENT DATE: 20170612
